FAERS Safety Report 8579997-4 (Version None)
Quarter: 2012Q3

REPORT INFORMATION
  Report Type: 
  Country: None (occurrence: None)
  Receive Date: 20120808
  Receipt Date: 20120731
  Transmission Date: 20120928
  Serious: No
  Sender: FDA-Public Use
  Company Number: JP-JNJFOC-20120713405

PATIENT
  Age: 68 Year
  Sex: Female

DRUGS (3)
  1. TRAMADOL HCL [Suspect]
     Indication: PAIN
     Dosage: 1 PER 1 DAY
     Route: 048
     Dates: start: 20120501, end: 20120607
  2. DIOVAN [Concomitant]
     Route: 048
  3. AMLODIPINE [Concomitant]
     Route: 048

REACTIONS (1)
  - LIVER DISORDER [None]
